FAERS Safety Report 5956701-7 (Version None)
Quarter: 2008Q4

REPORT INFORMATION
  Report Type: 
  Country: None (occurrence: None)
  Receive Date: 20081104
  Receipt Date: 20080901
  Transmission Date: 20090506
  Serious: Yes (Disabling)
  Sender: FDA-Public Use
  Company Number: 477170

PATIENT
  Age: 59 Year
  Sex: Female
  Weight: 52.2 kg

DRUGS (10)
  1. BONIVA [Suspect]
     Indication: OSTEOPENIA
     Dosage: 3 MG 1 PER 3 MONTH INTRAVENOUS
     Route: 042
     Dates: start: 20060425, end: 20080709
  2. BONIVA [Suspect]
     Indication: DRUG USE FOR UNKNOWN INDICATION
  3. SKELAXIN [Suspect]
     Indication: DRUG USE FOR UNKNOWN INDICATION
     Dosage: 800 MG
     Dates: end: 20080829
  4. PREMARIN [Concomitant]
  5. SINGULAIR [Concomitant]
  6. NEXIUM [Concomitant]
  7. VESICARE [Concomitant]
  8. RESTASIS (CYCLOSPORINE) [Concomitant]
  9. CALTRATE (CALCIUM CARBONATE) [Concomitant]
  10. ZYRTEC [Concomitant]

REACTIONS (10)
  - BACK PAIN [None]
  - BONE PAIN [None]
  - DERMATITIS [None]
  - DERMATITIS CONTACT [None]
  - GASTRIC DISORDER [None]
  - GASTROOESOPHAGEAL REFLUX DISEASE [None]
  - INFLUENZA LIKE ILLNESS [None]
  - INTERVERTEBRAL DISC DEGENERATION [None]
  - MENTAL DISORDER [None]
  - TOOTHACHE [None]
